FAERS Safety Report 16278237 (Version 1)
Quarter: 2019Q2

REPORT INFORMATION
  Report Type: Spontaneous
  Country: CN (occurrence: CN)
  Receive Date: 20190506
  Receipt Date: 20190506
  Transmission Date: 20190711
  Serious: Yes (Other)
  Sender: FDA-Public Use
  Company Number: CN-PFIZER INC-2019189547

PATIENT
  Age: 17 Month
  Sex: Male
  Weight: 10 kg

DRUGS (4)
  1. CYCLOPHOSPHAMIDE. [Suspect]
     Active Substance: CYCLOPHOSPHAMIDE
     Indication: CHEMOTHERAPY
     Dosage: 0.45 G, 1X/DAY
     Route: 041
     Dates: start: 20190402, end: 20190403
  2. PHARMORUBICIN [Suspect]
     Active Substance: EPIRUBICIN
     Indication: CHEMOTHERAPY
     Dosage: 15.5 MG, 1X/DAY
     Route: 041
     Dates: start: 20190401, end: 20190401
  3. NUO XIN [Suspect]
     Active Substance: CISPLATIN
     Indication: CHEMOTHERAPY
     Dosage: 30 MG, 1X/DAY
     Route: 041
     Dates: start: 20190330, end: 20190330
  4. ETOPOSIDE. [Suspect]
     Active Substance: ETOPOSIDE
     Indication: CHEMOTHERAPY
     Dosage: 0.05 G, 1X/DAY
     Route: 041
     Dates: start: 20190401, end: 20190404

REACTIONS (3)
  - White blood cell disorder [Recovering/Resolving]
  - Bone marrow failure [Recovering/Resolving]
  - Red blood cell abnormality [Recovering/Resolving]

NARRATIVE: CASE EVENT DATE: 20190405
